FAERS Safety Report 18185533 (Version 1)
Quarter: 2020Q3

REPORT INFORMATION
  Report Type: Spontaneous
  Country: DE (occurrence: DE)
  Receive Date: 20200824
  Receipt Date: 20200824
  Transmission Date: 20201103
  Serious: Yes (Hospitalization)
  Sender: FDA-Public Use
  Company Number: DE-GLAXOSMITHKLINE-DE2020168152

PATIENT
  Age: 9 Year
  Sex: Male
  Weight: 28 kg

DRUGS (8)
  1. COSOPT [Concomitant]
     Active Substance: DORZOLAMIDE HYDROCHLORIDE\TIMOLOL MALEATE
     Indication: OCULAR HYPERTENSION
     Dosage: 2 DF, QD DAILY DOSE: 2 DF DOSAGE FORM EVERY DAYS 2 SEPARATED DOSES
     Route: 047
     Dates: start: 20190830, end: 20190917
  2. PREDNIFLUID [Concomitant]
     Dosage: 3 DF, QD  DF DOSAGE FORM EVERY DAYS 3 SEPARATED DOSES
     Route: 065
     Dates: start: 20190830, end: 20190912
  3. PREDNIFLUID [Concomitant]
     Indication: IRIDOCYCLITIS
     Dosage: 1 DF, QD DAILY DOSE: 1 DF DOSAGE FORM EVERY DAYS
     Route: 065
     Dates: start: 20190920, end: 20190926
  4. BRIMONIDIN [Concomitant]
     Indication: OCULAR HYPERTENSION
     Dosage: DAILY DOSE: 2 DF DOSAGE FORM EVERY DAYS 2 SEPARATED DOSES
     Route: 065
     Dates: start: 20190830, end: 20190904
  5. ACICLOVIR [Suspect]
     Active Substance: ACYCLOVIR
     Indication: OPHTHALMIC HERPES SIMPLEX
     Dosage: 3 DF, QD DAILY DOSE: 3 DF DOSAGE FORM EVERY DAYS 3 SEPARATED DOSES
     Route: 042
     Dates: start: 20190902, end: 20190904
  6. ACICLOVIR [Suspect]
     Active Substance: ACYCLOVIR
     Indication: OPHTHALMIC HERPES SIMPLEX
     Dosage: DAILY DOSE: 750 MG MILLGRAM(S) EVERY DAYS 3 SEPARATED DOSES
     Route: 048
     Dates: start: 20190904, end: 20190908
  7. PREDNIFLUID [Concomitant]
     Dosage: 2 UNK 2 DF DOSAGE FORM EVERY DAYS 2 SEPARATED DOSES
     Route: 065
     Dates: start: 20190913, end: 20190919
  8. ACICLOVIR [Suspect]
     Active Substance: ACYCLOVIR
     Indication: OPHTHALMIC HERPES SIMPLEX
     Dosage: 3 DF, QD DAILY DOSE: 3 DF DOSAGE FORM EVERY DAYS 3 SEPARATED DOSES
     Route: 042
     Dates: start: 20190830, end: 20190901

REACTIONS (1)
  - Blood creatinine [Not Recovered/Not Resolved]

NARRATIVE: CASE EVENT DATE: 20190901
